FAERS Safety Report 11972039 (Version 1)
Quarter: 2016Q1

REPORT INFORMATION
  Report Type: Spontaneous
  Country: BR (occurrence: BR)
  Receive Date: 20160128
  Receipt Date: 20160128
  Transmission Date: 20160526
  Serious: Yes (Life-Threatening, Hospitalization)
  Sender: FDA-Public Use
  Company Number: PHHY2016BR009223

PATIENT
  Age: 3 Year
  Sex: Female

DRUGS (1)
  1. TRILEPTAL [Suspect]
     Active Substance: OXCARBAZEPINE
     Indication: CEREBRAL DISORDER
     Dosage: UNK
     Route: 048
     Dates: start: 20150413, end: 20150426

REACTIONS (27)
  - General physical health deterioration [Unknown]
  - Trichiasis [Unknown]
  - Skin atrophy [Unknown]
  - Retinal disorder [Unknown]
  - Madarosis [Unknown]
  - Skin lesion [Unknown]
  - Pyrexia [Unknown]
  - Photophobia [Unknown]
  - Product use issue [Unknown]
  - Blood blister [Unknown]
  - Crying [Unknown]
  - Wound [Unknown]
  - Stevens-Johnson syndrome [Unknown]
  - Dermatitis bullous [Unknown]
  - Fatigue [Unknown]
  - Pain [Unknown]
  - Pigmentation disorder [Unknown]
  - Malaise [Unknown]
  - Asthenia [Unknown]
  - Chest discomfort [Unknown]
  - Rash [Unknown]
  - Eye injury [Unknown]
  - Corneal disorder [Unknown]
  - Injury [Unknown]
  - Emotional distress [Unknown]
  - Onychomadesis [Unknown]
  - Genital lesion [Unknown]
